FAERS Safety Report 5678832-1 (Version None)
Quarter: 2008Q1

REPORT INFORMATION
  Report Type: 
  Country: None (occurrence: None)
  Receive Date: 20080321
  Receipt Date: 20080313
  Transmission Date: 20080703
  Serious: Yes (Other)
  Sender: FDA-Public Use
  Company Number: 025277

PATIENT
  Age: 66 Year
  Sex: Male

DRUGS (1)
  1. PACLITAXEL [Suspect]
     Indication: ANGIOSARCOMA
     Dosage: 175 MG/M2

REACTIONS (5)
  - DACRYOSTENOSIS ACQUIRED [None]
  - IMPAIRED HEALING [None]
  - INTRAOCULAR PRESSURE INCREASED [None]
  - PUNCTATE KERATITIS [None]
  - SCAR [None]
